FAERS Safety Report 25704436 (Version 1)
Quarter: 2025Q3

REPORT INFORMATION
  Report Type: Spontaneous
  Country: US (occurrence: US)
  Receive Date: 20250820
  Receipt Date: 20250820
  Transmission Date: 20251021
  Serious: No
  Sender: CARNEGIE PHARMACEUTICALS LLC
  Company Number: US-CARNEGIE-000072

PATIENT
  Sex: Male

DRUGS (1)
  1. ERYTHROMYCIN ETHYLSUCCINATE [Suspect]
     Active Substance: ERYTHROMYCIN ETHYLSUCCINATE
     Indication: Cardiac disorder
     Route: 065

REACTIONS (1)
  - Product use in unapproved indication [Unknown]
